FAERS Safety Report 8430714-8 (Version None)
Quarter: 2012Q2

REPORT INFORMATION
  Report Type: 
  Country: None (occurrence: None)
  Receive Date: 20120612
  Receipt Date: 20120608
  Transmission Date: 20120825
  Serious: Yes (Hospitalization)
  Sender: FDA-Public Use
  Company Number: SE-ROCHE-1076859

PATIENT
  Sex: Male

DRUGS (4)
  1. XELODA [Suspect]
     Indication: GASTRIC CANCER
     Dosage: LAST DOSE PRIOR TO SAE 3/JUN/2012
     Route: 048
     Dates: start: 20120502
  2. OXALIPLATIN [Suspect]
     Indication: GASTRIC CANCER
     Dosage: LAST DOSE PRIOR TO SAE 23/MAY/2012
     Route: 042
     Dates: start: 20120502
  3. EPIRUBICIN HYDROCHLORIDE [Suspect]
     Indication: GASTRIC CANCER
     Dosage: LAST DOSE PRIOR TO SAE 23/MAY/2012
     Route: 042
     Dates: start: 20120502
  4. CLINDAMYCIN [Concomitant]
     Dates: start: 20120602, end: 20120603

REACTIONS (3)
  - GASTROINTESTINAL DISORDER [None]
  - NEUTROPENIA [None]
  - METABOLIC DISORDER [None]
